FAERS Safety Report 8042023-X (Version None)
Quarter: 2012Q1

REPORT INFORMATION
  Report Type: 
  Country: None (occurrence: None)
  Receive Date: 20120112
  Receipt Date: 20120104
  Transmission Date: 20120608
  Serious: Yes (Hospitalization)
  Sender: FDA-Public Use
  Company Number: US-US-EMD SERONO, INC.-7096365

PATIENT
  Sex: Female

DRUGS (4)
  1. REBIF [Suspect]
     Indication: MULTIPLE SCLEROSIS
     Route: 058
     Dates: start: 20080515
  2. BACLOFEN [Concomitant]
     Indication: MUSCLE SPASTICITY
  3. MYCOPHENOLATE MOFETIL (CELLCEPT) [Concomitant]
     Indication: MULTIPLE SCLEROSIS
     Dates: end: 20110901
  4. REBIF [Suspect]
     Route: 058
     Dates: start: 20111001

REACTIONS (7)
  - URINARY TRACT INFECTION [None]
  - INJECTION SITE HAEMATOMA [None]
  - CLOSTRIDIAL INFECTION [None]
  - PNEUMONIA [None]
  - SEPSIS [None]
  - MULTIPLE SCLEROSIS RELAPSE [None]
  - ENDOMETRIAL ABLATION [None]
